FAERS Safety Report 23375303 (Version 1)
Quarter: 2024Q1

REPORT INFORMATION
  Report Type: Other
  Country: None (occurrence: US)
  Receive Date: 20240106
  Receipt Date: 20240106
  Transmission Date: 20240410
  Serious: Yes (Death, Other)
  Sender: FDA-Public Use
  Company Number: US-SIGA Technologies, Inc.-2150252

PATIENT
  Age: 30 Year
  Sex: Female

DRUGS (4)
  1. TPOXX [Suspect]
     Active Substance: TECOVIRIMAT
     Indication: Monkeypox
     Route: 048
  2. TPOXX [Suspect]
     Active Substance: TECOVIRIMAT
     Route: 042
  3. vaccinia immune globulin intravenous (VIGIV) [Concomitant]
     Route: 042
  4. antiretroviral treatment (ART) [Concomitant]

REACTIONS (1)
  - Drug resistance [None]
